FAERS Safety Report 11738076 (Version 1)
Quarter: 2015Q4

REPORT INFORMATION
  Report Type: Spontaneous
  Country: US (occurrence: US)
  Receive Date: 20151113
  Receipt Date: 20151113
  Transmission Date: 20160304
  Serious: Yes (Other)
  Sender: FDA-Public Use
  Company Number: US-PFIZER INC-2015372288

PATIENT
  Age: 15 Year
  Sex: Male

DRUGS (3)
  1. SULFAMETHOXAZOLE/TRIMETHOPRIM [Suspect]
     Active Substance: SULFAMETHOXAZOLE\TRIMETHOPRIM
     Indication: PROPHYLAXIS
     Dosage: UNK
  2. VANCOMYCIN [Suspect]
     Active Substance: VANCOMYCIN
     Indication: PROPHYLAXIS
     Dosage: UNK
  3. ITRACONAZOLE. [Suspect]
     Active Substance: ITRACONAZOLE
     Indication: PROPHYLAXIS
     Dosage: UNK

REACTIONS (16)
  - Skin lesion [None]
  - Arteriosclerosis [None]
  - Toxicity to various agents [None]
  - Pneumonia [None]
  - Focal segmental glomerulosclerosis [None]
  - Hepatitis cholestatic [None]
  - Kidney transplant rejection [None]
  - Peritoneal dialysis [None]
  - Nephrocalcinosis [Unknown]
  - Hyperparathyroidism secondary [None]
  - Renal transplant [None]
  - Hypocalcaemia [None]
  - Tubulointerstitial nephritis [None]
  - Parathyroid reimplantation [None]
  - Hyperphosphataemia [None]
  - Hepatotoxicity [None]
